FAERS Safety Report 10758199 (Version 1)
Quarter: 2015Q1

REPORT INFORMATION
  Report Type: Spontaneous
  Country: ES (occurrence: ES)
  Receive Date: 20150203
  Receipt Date: 20150203
  Transmission Date: 20150721
  Serious: Yes (Death, Hospitalization, Other)
  Sender: FDA-Public Use
  Company Number: ES-SA-2015SA009211

PATIENT
  Age: 81 Year
  Sex: Male

DRUGS (3)
  1. CLEXANE [Suspect]
     Active Substance: ENOXAPARIN SODIUM
     Indication: ARRHYTHMIA
     Route: 058
     Dates: start: 20150113, end: 20150115
  2. SINTROM [Concomitant]
     Active Substance: ACENOCOUMAROL
     Indication: ARRHYTHMIA
     Dates: start: 20150113
  3. CLEXANE [Suspect]
     Active Substance: ENOXAPARIN SODIUM
     Indication: ARRHYTHMIA
     Route: 058
     Dates: end: 20150112

REACTIONS (6)
  - Acute respiratory failure [Fatal]
  - Activated partial thromboplastin time prolonged [Unknown]
  - Anti factor X antibody positive [Unknown]
  - Dermatitis bullous [Not Recovered/Not Resolved]
  - Skin lesion [Unknown]
  - International normalised ratio increased [Unknown]

NARRATIVE: CASE EVENT DATE: 20150113
